FAERS Safety Report 10356712 (Version 13)
Quarter: 2018Q2

REPORT INFORMATION
  Report Type: Report from Study
  Country: AT (occurrence: AT)
  Receive Date: 20140801
  Receipt Date: 20180615
  Transmission Date: 20180711
  Serious: Yes (Death, Hospitalization, Other)
  Sender: FDA-Public Use
  Company Number: AT-INCYTE CORPORATION-2014IN002095

PATIENT

DRUGS (15)
  1. GASTROZOL [Concomitant]
     Dosage: 1 DF, UNK
     Route: 065
  2. AMPHO-MORONAL [Concomitant]
     Active Substance: AMPHOTERICIN B
     Indication: PRODUCT USED FOR UNKNOWN INDICATION
     Dosage: 3 DF, UNK (3 LOZENGE)
     Route: 065
  3. JAKAVI [Suspect]
     Active Substance: RUXOLITINIB
     Dosage: 5 MG, BID
     Route: 048
     Dates: start: 20140113, end: 20140118
  4. KCL [Concomitant]
     Active Substance: POTASSIUM CHLORIDE
     Indication: PRODUCT USED FOR UNKNOWN INDICATION
     Dosage: 2 DF, BID (2 TABLETS)
     Route: 065
  5. MIRTAZAPINE. [Concomitant]
     Active Substance: MIRTAZAPINE
     Indication: PRODUCT USED FOR UNKNOWN INDICATION
     Dosage: 1 DF, UNK
     Route: 065
  6. JAKAVI [Suspect]
     Active Substance: RUXOLITINIB
     Dosage: 5 MG, BID
     Route: 048
     Dates: start: 20140107, end: 20140110
  7. VALACICLOVIR ARCANA [Concomitant]
     Indication: PRODUCT USED FOR UNKNOWN INDICATION
     Dosage: 1 DF, UNK
     Route: 065
  8. FLUCONAZOLE. [Concomitant]
     Active Substance: FLUCONAZOLE
     Indication: PRODUCT USED FOR UNKNOWN INDICATION
     Dosage: 1 DF, UNK
     Route: 065
  9. JAKAVI [Suspect]
     Active Substance: RUXOLITINIB
     Dosage: 10 MG, QD
     Route: 048
     Dates: start: 20131127, end: 20131218
  10. FUROHEXAL [Concomitant]
     Indication: PRODUCT USED FOR UNKNOWN INDICATION
     Dosage: 0.5 DF, UNK (1/2 TAB)
     Route: 065
  11. LIDAPRIM [Concomitant]
     Indication: PRODUCT USED FOR UNKNOWN INDICATION
     Dosage: 2 DF, BIW (TWICE A WEEK)
     Route: 065
  12. CITALOPRAM [Concomitant]
     Active Substance: CITALOPRAM HYDROBROMIDE
     Indication: PRODUCT USED FOR UNKNOWN INDICATION
     Dosage: 1 DF, UNK
     Route: 065
  13. GASTROZOL [Concomitant]
     Indication: PRODUCT USED FOR UNKNOWN INDICATION
     Dosage: 1 DF, UNK
     Route: 065
  14. JAKAVI [Suspect]
     Active Substance: RUXOLITINIB
     Indication: MYELOFIBROSIS
     Dosage: 30 MG, QD
     Route: 048
     Dates: start: 20130919, end: 20131014
  15. ALLOPURINOL. [Concomitant]
     Active Substance: ALLOPURINOL
     Indication: PRODUCT USED FOR UNKNOWN INDICATION
     Dosage: 1 DF, UNK
     Route: 065

REACTIONS (30)
  - Aspartate aminotransferase increased [Unknown]
  - Glomerular filtration rate decreased [Unknown]
  - Blood lactate dehydrogenase increased [Unknown]
  - Blood uric acid increased [Unknown]
  - Clostridium test positive [Unknown]
  - Pneumonia fungal [Fatal]
  - Pneumonia fungal [Not Recovered/Not Resolved]
  - Gamma-glutamyltransferase increased [Unknown]
  - Haematocrit decreased [Unknown]
  - White blood cell count increased [Unknown]
  - Chills [Fatal]
  - Myelofibrosis [Fatal]
  - Pyrexia [Fatal]
  - Hypoproteinaemia [Unknown]
  - Infection [Fatal]
  - Blood urea increased [Unknown]
  - Aortic arteriosclerosis [Unknown]
  - Blood creatinine increased [Unknown]
  - Haematoma infection [Fatal]
  - Protein total decreased [Unknown]
  - Candida infection [Unknown]
  - Anaemia [Unknown]
  - Mitral valve incompetence [Unknown]
  - Blast cell count increased [Unknown]
  - Blood glucose increased [Unknown]
  - Thrombocytopenia [Not Recovered/Not Resolved]
  - C-reactive protein increased [Unknown]
  - Enterococcal infection [Unknown]
  - Multiple organ dysfunction syndrome [Fatal]
  - Blood triglycerides increased [Unknown]

NARRATIVE: CASE EVENT DATE: 20131014
